FAERS Safety Report 7776497-6 (Version None)
Quarter: 2011Q3

REPORT INFORMATION
  Report Type: 
  Country: None (occurrence: None)
  Receive Date: 20110926
  Receipt Date: 20110920
  Transmission Date: 20111222
  Serious: Yes (Hospitalization)
  Sender: FDA-Public Use
  Company Number: US-AMGEN-USASP2011048696

PATIENT
  Age: 45 Year
  Sex: Female

DRUGS (1)
  1. NPLATE [Suspect]
     Indication: PANCYTOPENIA

REACTIONS (1)
  - SEPSIS [None]
